FAERS Safety Report 5711584-5 (Version None)
Quarter: 2008Q2

REPORT INFORMATION
  Report Type: 
  Country: None (occurrence: None)
  Receive Date: 20080421
  Receipt Date: 20080416
  Transmission Date: 20081010
  Serious: Yes (Hospitalization)
  Sender: FDA-Public Use
  Company Number: US-BRISTOL-MYERS SQUIBB COMPANY-14127765

PATIENT
  Age: 60 Year
  Sex: Female
  Weight: 71 kg

DRUGS (4)
  1. ERBITUX [Suspect]
     Indication: NON-SMALL CELL LUNG CANCER
     Dosage: LAST ADMINISTERED DATE: 06-MAR-2008.
     Route: 042
     Dates: start: 20080306, end: 20080306
  2. CARBOPLATIN [Suspect]
     Indication: NON-SMALL CELL LUNG CANCER
     Dosage: LAST ADMINISTERED DATE: 03-JAN-2008.
     Dates: start: 20080103, end: 20080103
  3. TAXOL [Suspect]
     Indication: NON-SMALL CELL LUNG CANCER
     Dosage: LAST ADMINISTERED DATE: 03-JAN-2008.
     Route: 042
     Dates: start: 20080103, end: 20080103
  4. BEVACIZUMAB [Suspect]
     Indication: NON-SMALL CELL LUNG CANCER
     Dosage: LAST ADMINISTERED DATE: 06-MAR-2008.
     Route: 042
     Dates: start: 20080306, end: 20080306

REACTIONS (2)
  - BACK PAIN [None]
  - OSTEONECROSIS [None]
